FAERS Safety Report 9513410 (Version 1)
Quarter: 2013Q3

REPORT INFORMATION
  Report Type: Spontaneous
  Country: US (occurrence: US)
  Receive Date: 20130910
  Receipt Date: 20130910
  Transmission Date: 20140515
  Serious: No
  Sender: FDA-Public Use
  Company Number: US-TARO-2012P1054017

PATIENT
  Age: 64 Year
  Sex: Female
  Weight: 90.72 kg

DRUGS (2)
  1. WARFARIN SODIUM TABLETS USP 1MG [Suspect]
     Indication: PULMONARY EMBOLISM
     Route: 048
     Dates: start: 201205, end: 201208
  2. WARFARIN SODIUM TABLETS USP 1MG [Suspect]
     Indication: PULMONARY EMBOLISM
     Dates: start: 201208

REACTIONS (1)
  - Alopecia [Not Recovered/Not Resolved]
